FAERS Safety Report 20660265 (Version 1)
Quarter: 2022Q1

REPORT INFORMATION
  Report Type: Spontaneous
  Country: MA (occurrence: MA)
  Receive Date: 20220331
  Receipt Date: 20220331
  Transmission Date: 20220423
  Serious: Yes (Death, Other)
  Sender: FDA-Public Use
  Company Number: MA-PHARMAAND-2022PHR00109

PATIENT
  Age: 47 Year
  Sex: Female

DRUGS (4)
  1. PEGINTERFERON ALFA-2A [Suspect]
     Active Substance: PEGINTERFERON ALFA-2A
     Indication: Chronic hepatitis C
     Dosage: 180 ?G
     Route: 058
  2. RIBAVIRIN [Concomitant]
     Active Substance: RIBAVIRIN
     Dosage: 400 MG, 2X/DAY
     Route: 048
  3. METHYLPREDNISOLONE [Concomitant]
     Active Substance: METHYLPREDNISOLONE
     Dosage: 10 MG/KG
     Route: 042
  4. PREDNISONE [Concomitant]
     Active Substance: PREDNISONE
     Dosage: 1 MG/KG
     Route: 065

REACTIONS (2)
  - Neurosarcoidosis [Fatal]
  - Sarcoidosis [Unknown]
